FAERS Safety Report 9808202 (Version 5)
Quarter: 2014Q2

REPORT INFORMATION
  Report Type: Spontaneous
  Country: US (occurrence: US)
  Receive Date: 20140110
  Receipt Date: 20140507
  Transmission Date: 20141212
  Serious: Yes (Hospitalization, Other)
  Sender: FDA-Public Use
  Company Number: US-RB-060584-13

PATIENT
  Age: 39 Year
  Sex: Female
  Weight: 56 kg

DRUGS (12)
  1. SUBOXONE FILM [Suspect]
     Dosage: SUBOXONE FILM
     Route: 060
     Dates: start: 2008
  2. SUBOXONE FILM [Suspect]
     Indication: DRUG DEPENDENCE
     Dosage: SUBOXONE FILM; 1/2 STRIP DAILY
     Route: 060
     Dates: end: 2013
  3. SUBOXONE FILM [Suspect]
     Dosage: SUBOXONE FILM; TAKING LESS THAN 1/2 STRIP A DAY
     Route: 060
     Dates: start: 2013
  4. SEROQUIL [Concomitant]
     Indication: DEPRESSION
     Dosage: DOSING DETAILS UNKNOWN
     Route: 048
  5. XANAX [Concomitant]
     Indication: ANXIETY
     Route: 048
  6. CLONIDINE [Concomitant]
     Indication: HYPERTENSION
     Dosage: DOSING DETAILS UNKNOWN
     Route: 048
  7. POTASSIUM [Concomitant]
     Indication: HYPOKALAEMIA
     Dosage: DOSING DETAILS UNKNOWN
     Route: 048
  8. DICLOFENAC [Concomitant]
     Indication: FIBROMYALGIA
     Dosage: DOSING DETAILS UNKNOWN
     Route: 048
  9. DICLOFENAC [Concomitant]
     Indication: FIBROMYALGIA
     Dosage: DOSING DETAILS UNKNOWN
     Route: 048
  10. OMEPRAZOLE [Concomitant]
     Indication: GASTROOESOPHAGEAL REFLUX DISEASE
     Dosage: UNKNOWN DOSING DETAILS
     Route: 048
  11. BUSPAR [Concomitant]
     Indication: DEPRESSION
     Dosage: UNKNOWN DOSING DETAILS
     Route: 048
  12. EFFEXOR [Concomitant]
     Indication: BIPOLAR DISORDER
     Dosage: UNKNOWN DOSING DETAILS
     Route: 048

REACTIONS (21)
  - Wrong technique in drug usage process [Not Recovered/Not Resolved]
  - Inguinal hernia [Recovered/Resolved]
  - Gallbladder disorder [Unknown]
  - Drug withdrawal syndrome [Unknown]
  - Seasonal allergy [Not Recovered/Not Resolved]
  - Ulcer [Not Recovered/Not Resolved]
  - Oedema peripheral [Not Recovered/Not Resolved]
  - Oedema peripheral [Not Recovered/Not Resolved]
  - Abdominal pain upper [Not Recovered/Not Resolved]
  - Constipation [Not Recovered/Not Resolved]
  - Influenza like illness [Unknown]
  - Chest pain [Unknown]
  - Dizziness [Unknown]
  - Nausea [Not Recovered/Not Resolved]
  - Weight decreased [Not Recovered/Not Resolved]
  - Decreased appetite [Unknown]
  - Vomiting [Not Recovered/Not Resolved]
  - Diarrhoea [Not Recovered/Not Resolved]
  - Faeces discoloured [Not Recovered/Not Resolved]
  - Procedural pain [Not Recovered/Not Resolved]
  - Convulsion [Unknown]
